FAERS Safety Report 13611970 (Version 1)
Quarter: 2017Q2

REPORT INFORMATION
  Report Type: Spontaneous
  Country: US (occurrence: US)
  Receive Date: 20170605
  Receipt Date: 20170605
  Transmission Date: 20170830
  Serious: Yes (Hospitalization)
  Sender: FDA-Public Use
  Company Number: None

PATIENT
  Age: 77 Year
  Sex: Male
  Weight: 77.18 kg

DRUGS (1)
  1. ATEZOLIZUMAB 1200MG [Suspect]
     Active Substance: ATEZOLIZUMAB
     Indication: METASTATIC CARCINOMA OF THE BLADDER
     Dosage: 1200MG EVERY  3 WEEKS IV
     Route: 042
     Dates: start: 20161026, end: 20170503

REACTIONS (1)
  - Aphasia [None]

NARRATIVE: CASE EVENT DATE: 20170523
